FAERS Safety Report 17677551 (Version 1)
Quarter: 2020Q2

REPORT INFORMATION
  Report Type: Report from Study
  Country: US (occurrence: US)
  Receive Date: 20200416
  Receipt Date: 20200416
  Transmission Date: 20200714
  Serious: Yes (Life-Threatening, Hospitalization)
  Sender: FDA-Public Use
  Company Number: US-RECRO GAINESVILLE LLC-REPH-2020-000004

PATIENT
  Age: 57 Year
  Sex: Female

DRUGS (1)
  1. VERAPAMIL HYDROCHLORIDE SUSTAINED RELEASE [Suspect]
     Active Substance: VERAPAMIL HYDROCHLORIDE
     Dosage: 8.5 GRAM, ONE TIME DOSE
     Route: 048

REACTIONS (6)
  - Intentional overdose [Unknown]
  - Mitral valve incompetence [Unknown]
  - Hypotension [Unknown]
  - Atrioventricular block complete [Unknown]
  - Distributive shock [Unknown]
  - Rhythm idioventricular [Unknown]
